FAERS Safety Report 9990039 (Version 1)
Quarter: 2014Q1

REPORT INFORMATION
  Report Type: Spontaneous
  Country: US (occurrence: US)
  Receive Date: 20140310
  Receipt Date: 20140310
  Transmission Date: 20141002
  Serious: No
  Sender: FDA-Public Use
  Company Number: US-ABBVIE-13P-163-1133295-00

PATIENT
  Sex: Female

DRUGS (6)
  1. HUMIRA [Suspect]
     Indication: RHEUMATOID ARTHRITIS
  2. HUMIRA [Suspect]
     Indication: SJOGREN^S SYNDROME
  3. HUMIRA [Suspect]
     Indication: LYMPHANGIOLEIOMYOMATOSIS
  4. LEFLUNOMIDE [Concomitant]
     Indication: RHEUMATOID ARTHRITIS
  5. LEFLUNOMIDE [Concomitant]
     Indication: SJOGREN^S SYNDROME
     Dosage: DECREASED DOSE
  6. LEFLUNOMIDE [Concomitant]
     Indication: LYMPHANGIOLEIOMYOMATOSIS

REACTIONS (1)
  - Sjogren^s syndrome [Unknown]
